FAERS Safety Report 23651632 (Version 2)
Quarter: 2024Q1

REPORT INFORMATION
  Report Type: Spontaneous
  Country: US (occurrence: US)
  Receive Date: 20240320
  Receipt Date: 20240322
  Transmission Date: 20240409
  Serious: No
  Sender: FDA-Public Use
  Company Number: US-JNJFOC-20240304841

PATIENT
  Sex: Female

DRUGS (1)
  1. MENS ROGAINE EXTRA STRENGTH [Suspect]
     Active Substance: MINOXIDIL
     Indication: Product used for unknown indication
     Route: 061

REACTIONS (2)
  - Application site pruritus [Not Recovered/Not Resolved]
  - Product use issue [Unknown]
